FAERS Safety Report 23533752 (Version 1)
Quarter: 2024Q1

REPORT INFORMATION
  Report Type: Spontaneous
  Country: US (occurrence: US)
  Receive Date: 20240216
  Receipt Date: 20240216
  Transmission Date: 20240410
  Serious: No
  Sender: FDA-Public Use
  Company Number: US-PFIZER INC-PV202300152533

PATIENT
  Age: 74 Year
  Sex: Female
  Weight: 75.3 kg

DRUGS (16)
  1. IBRANCE [Suspect]
     Active Substance: PALBOCICLIB
     Indication: Lung cancer metastatic
     Dosage: ON DAYS 1-21 OF EVERY 28 DAYS, TAKE WITH FOOD
  2. IBRANCE [Suspect]
     Active Substance: PALBOCICLIB
     Dosage: 100 MG
  3. IBRANCE [Suspect]
     Active Substance: PALBOCICLIB
     Dosage: 75 MG, 1X/DAY
     Route: 048
  4. IBRANCE [Suspect]
     Active Substance: PALBOCICLIB
     Dosage: 125 MG TABLET DAILY FOR THREE WEEKS ON, ONE WEEK OFF
  5. POTASSIUM [Concomitant]
     Active Substance: POTASSIUM
     Dosage: UNK
  6. FISH OIL [Concomitant]
     Active Substance: FISH OIL
     Dosage: UNK
  7. CALCIUM [Concomitant]
     Active Substance: CALCIUM
     Dosage: UNK
  8. ONDANSETRON [Concomitant]
     Active Substance: ONDANSETRON
     Dosage: UNK
  9. SIMVASTATIN [Concomitant]
     Active Substance: SIMVASTATIN
     Dosage: UNK
  10. METOPROLOL [Concomitant]
     Active Substance: METOPROLOL
     Dosage: UNK
  11. OMEPRAZOLE [Concomitant]
     Active Substance: OMEPRAZOLE
     Dosage: UNK
  12. ZYRTEC [Concomitant]
     Active Substance: CETIRIZINE HYDROCHLORIDE
     Dosage: UNK
  13. MAXZIDE [Concomitant]
     Active Substance: HYDROCHLOROTHIAZIDE\TRIAMTERENE
     Dosage: UNK
  14. COBAMAMIDE [Concomitant]
     Active Substance: COBAMAMIDE
     Dosage: UNK
  15. VITAMIN C [Concomitant]
     Active Substance: ASCORBIC ACID
     Dosage: UNK
  16. MIRALAX [Concomitant]
     Active Substance: POLYETHYLENE GLYCOL 3350
     Dosage: UNK

REACTIONS (3)
  - White blood cell count decreased [Recovered/Resolved]
  - Bronchitis [Recovering/Resolving]
  - Off label use [Unknown]
